FAERS Safety Report 24257822 (Version 2)
Quarter: 2024Q4

REPORT INFORMATION
  Report Type: Report from Study
  Country: US (occurrence: US)
  Receive Date: 20240828
  Receipt Date: 20241226
  Transmission Date: 20250115
  Serious: Yes (Other)
  Sender: ACADIA PHARMACEUTICALS
  Company Number: US-ACADIA PHARMACEUTICALS INC.-ACA-2024-PIM-004356

PATIENT
  Sex: Female

DRUGS (1)
  1. NUPLAZID [Suspect]
     Active Substance: PIMAVANSERIN TARTRATE
     Indication: Parkinson^s disease
     Dosage: 34 MILLIGRAM, QD
     Route: 048
     Dates: start: 20200625

REACTIONS (7)
  - Hallucination [Unknown]
  - Condition aggravated [Unknown]
  - Vomiting [Unknown]
  - Gait disturbance [Unknown]
  - Confusional state [Unknown]
  - Constipation [Unknown]
  - Nausea [Unknown]
